FAERS Safety Report 9403155 (Version 1)
Quarter: 2013Q3

REPORT INFORMATION
  Report Type: Spontaneous
  Country: JP (occurrence: JP)
  Receive Date: 20130716
  Receipt Date: 20130716
  Transmission Date: 20140515
  Serious: Yes (Death)
  Sender: FDA-Public Use
  Company Number: JP-GLAXOSMITHKLINE-B0907594A

PATIENT
  Sex: Male

DRUGS (1)
  1. VOTRIENT [Suspect]
     Indication: LIPOSARCOMA
     Dosage: 800MG PER DAY
     Route: 048
     Dates: start: 20130104, end: 20130222

REACTIONS (2)
  - Disease progression [Fatal]
  - Liver disorder [Recovering/Resolving]
